FAERS Safety Report 16048196 (Version 2)
Quarter: 2019Q1

REPORT INFORMATION
  Report Type: Spontaneous
  Country: KR (occurrence: KR)
  Receive Date: 20190307
  Receipt Date: 20190318
  Transmission Date: 20190418
  Serious: Yes (Death, Other)
  Sender: FDA-Public Use
  Company Number: KR-009507513-1903KOR002551

PATIENT
  Sex: Female

DRUGS (18)
  1. LIDOCAINE. [Concomitant]
     Active Substance: LIDOCAINE
     Dosage: QUANTITY: 1, DAYS:1
     Dates: start: 20190219, end: 20190219
  2. POTASSIUM CHLORIDE. [Concomitant]
     Active Substance: POTASSIUM CHLORIDE
     Dosage: QUANTITY: 2, DAYS:1
     Dates: start: 20190224, end: 20190224
  3. MUTERAN [Concomitant]
     Active Substance: ACETYLCYSTEINE
     Dosage: QUANTITY: 3, DAYS:1
     Dates: start: 20190224, end: 20190224
  4. TRIAXONE [Concomitant]
     Dosage: QUANTITY: 1, DAYS:3
     Dates: start: 20190221, end: 20190223
  5. TAZOLACTAM [Concomitant]
     Dosage: QUANTITY: 3, DAYS:1
     Dates: start: 20190224, end: 20190224
  6. SODIUM CHLORIDE. [Concomitant]
     Active Substance: SODIUM CHLORIDE
     Dosage: 100ML BAG/QUANTITY: 3, DAYS:1
     Dates: start: 20190224, end: 20190224
  7. SODIUM CHLORIDE. [Concomitant]
     Active Substance: SODIUM CHLORIDE
     Dosage: 100ML BAG/QUANTITY: 1, DAYS:4
     Dates: start: 20190224, end: 20190224
  8. ALBUMIN HUMAN [Concomitant]
     Active Substance: ALBUMIN HUMAN
     Dosage: QUANTITY: 1, DAYS:1
     Dates: start: 20190224, end: 20190224
  9. PENIRAMIN [Concomitant]
     Dosage: QUANTITY: 1, DAYS:1
     Dates: start: 20190221, end: 20190221
  10. STERILE WATER [Concomitant]
     Active Substance: WATER
     Dosage: QUANTITY: 1, DAYS:2
     Dates: start: 20190224, end: 20190224
  11. PINE [Concomitant]
     Dosage: QUANTITY: 1, DAYS:2
     Dates: start: 20190219, end: 20190221
  12. STERILE WATER [Concomitant]
     Active Substance: WATER
     Dosage: QUANTITY: 1, DAYS:1/1000ML FOR IRRIGATION
     Dates: start: 20190222, end: 20190222
  13. VASOPRESSIN. [Concomitant]
     Active Substance: VASOPRESSIN
     Dosage: QUANTITY: 2, DAYS:1
     Dates: start: 20190224, end: 20190224
  14. DEXTROSE. [Concomitant]
     Active Substance: DEXTROSE
     Dosage: 200 ML; QUANTITY: 2, DAYS: 2
     Dates: start: 20190224, end: 20190224
  15. MACPERAN [Concomitant]
     Active Substance: METOCLOPRAMIDE HYDROCHLORIDE
     Dosage: QUANTITY: 3, DAYS:1
     Dates: start: 20190224, end: 20190224
  16. NORPIN INJECTION [Concomitant]
     Dosage: QUANTITY: 1, DAYS:3
     Dates: start: 20190224, end: 20190224
  17. KEYTRUDA [Suspect]
     Active Substance: PEMBROLIZUMAB
     Dosage: QUANTITY: 2, DAYS:1
     Dates: start: 20190219
  18. TRANEXAMIC ACID. [Concomitant]
     Active Substance: TRANEXAMIC ACID
     Dosage: QUANTITY: 3, DAYS:1
     Dates: start: 20190224, end: 20190224

REACTIONS (1)
  - Malignant neoplasm progression [Fatal]

NARRATIVE: CASE EVENT DATE: 201902
